FAERS Safety Report 6907085-9 (Version None)
Quarter: 2010Q3

REPORT INFORMATION
  Report Type: 
  Country: None (occurrence: None)
  Receive Date: 20100804
  Receipt Date: 20080923
  Transmission Date: 20110219
  Serious: Yes (Other)
  Sender: FDA-Public Use
  Company Number: US-PFIZER INC-2008043631

PATIENT
  Sex: Male
  Weight: 83.4 kg

DRUGS (3)
  1. MARAVIROC [Suspect]
     Route: 048
     Dates: start: 20051011
  2. OXYCODONE [Concomitant]
     Indication: PROCEDURAL PAIN
     Route: 048
     Dates: start: 20080218
  3. FERROUS SULFATE [Concomitant]
     Indication: ANAEMIA
     Route: 048
     Dates: start: 20080325

REACTIONS (1)
  - RECTAL CANCER [None]
